FAERS Safety Report 19292199 (Version 1)
Quarter: 2021Q2

REPORT INFORMATION
  Report Type: Other
  Country: CN (occurrence: CN)
  Receive Date: 20210524
  Receipt Date: 20210524
  Transmission Date: 20210717
  Serious: Yes (Other)
  Sender: FDA-Public Use
  Company Number: CN-ROCHE-2044700

PATIENT
  Age: 46 Year
  Sex: Male
  Weight: 55 kg

DRUGS (1)
  1. AVASTIN [Suspect]
     Active Substance: BEVACIZUMAB
     Indication: COLORECTAL CANCER
     Route: 041
     Dates: start: 20170829, end: 20210406

REACTIONS (11)
  - Immunodeficiency [Unknown]
  - Skin disorder [Unknown]
  - Hypersensitivity [Unknown]
  - Limb injury [Unknown]
  - Malaise [Unknown]
  - Discomfort [Unknown]
  - Productive cough [Unknown]
  - Asthenia [Unknown]
  - Haemoptysis [Unknown]
  - Haemorrhage [Unknown]
  - Rash [Unknown]
